FAERS Safety Report 6045892-8 (Version None)
Quarter: 2009Q1

REPORT INFORMATION
  Report Type: 
  Country: None (occurrence: None)
  Receive Date: 20090121
  Receipt Date: 20090121
  Transmission Date: 20090719
  Serious: Yes (Hospitalization)
  Sender: FDA-Public Use
  Company Number: GB-ALLERGAN-0808096US

PATIENT
  Sex: Female

DRUGS (4)
  1. BOTULINUM TOXIN TYPE A [Suspect]
     Indication: HYPERTONIC BLADDER
     Dosage: 100 UNITS, SINGLE
     Route: 030
     Dates: start: 20061207, end: 20061207
  2. CIPROFLOXACIN [Concomitant]
     Indication: URINARY TRACT INFECTION
     Dates: start: 20061222, end: 20061224
  3. AUGMENTIN '125' [Concomitant]
     Indication: URINARY TRACT INFECTION
     Dates: start: 20061224, end: 20070131
  4. OXYBUTYNIN CHLORIDE [Concomitant]
     Indication: BLADDER SPASM
     Dates: start: 20070205, end: 20070324

REACTIONS (1)
  - URINARY RETENTION [None]
